FAERS Safety Report 23210012 (Version 2)
Quarter: 2023Q4

REPORT INFORMATION
  Report Type: Spontaneous
  Country: CN (occurrence: CN)
  Receive Date: 20231121
  Receipt Date: 20231130
  Transmission Date: 20240109
  Serious: Yes (Hospitalization, Other)
  Sender: FDA-Public Use
  Company Number: None

PATIENT
  Age: 57 Year
  Sex: Male

DRUGS (20)
  1. TACROLIMUS [Interacting]
     Active Substance: TACROLIMUS
     Indication: Immunosuppressant drug therapy
     Dosage: UNK
     Route: 065
  2. TACROLIMUS [Interacting]
     Active Substance: TACROLIMUS
     Dosage: 1 MILLIGRAM, BID (EVERY 12 HOUR), RESUMED DOSE
     Route: 065
     Dates: start: 20220706, end: 20220711
  3. TACROLIMUS [Interacting]
     Active Substance: TACROLIMUS
     Dosage: 0.5 MILLIGRAM, QD (DAY 19)
     Route: 065
  4. TACROLIMUS [Interacting]
     Active Substance: TACROLIMUS
     Dosage: 1.5 MILLIGRAM, BID (0.5 MG PLUS 1 MG ON DAY 25)
     Route: 065
  5. TACROLIMUS [Interacting]
     Active Substance: TACROLIMUS
     Dosage: 1 MILLIGRAM, BID (ON DAY 26)
     Route: 065
  6. METHYLPREDNISOLONE [Suspect]
     Active Substance: METHYLPREDNISOLONE
     Indication: Liver transplant rejection
     Dosage: 120 MILLIGRAM (PULSE, INITIAL DOSE)
     Route: 065
  7. METHYLPREDNISOLONE [Suspect]
     Active Substance: METHYLPREDNISOLONE
     Dosage: 80 MILLIGRAM (DAY 13)
     Route: 065
  8. METHYLPREDNISOLONE [Suspect]
     Active Substance: METHYLPREDNISOLONE
     Dosage: 60 MILLIGRAM (DAY 14)
     Route: 065
  9. METHYLPREDNISOLONE [Suspect]
     Active Substance: METHYLPREDNISOLONE
     Dosage: 40 MILLIGRAM (DAY 15)
     Route: 065
  10. METHYLPREDNISOLONE [Suspect]
     Active Substance: METHYLPREDNISOLONE
     Dosage: 12 MILLIGRAM (DAY 16)
     Route: 065
  11. METHYLPREDNISOLONE [Suspect]
     Active Substance: METHYLPREDNISOLONE
     Dosage: 8 MILLIGRAM (DAY 20)
     Route: 065
  12. NIRMATRELVIR [Interacting]
     Active Substance: NIRMATRELVIR
     Indication: COVID-19 pneumonia
     Dosage: 300 MILLIGRAM, BID (EVERY 12 HOUR)
     Route: 048
     Dates: start: 20220704, end: 20220708
  13. RITONAVIR [Interacting]
     Active Substance: RITONAVIR
     Indication: COVID-19 pneumonia
     Dosage: 100 MILLIGRAM, BID (EVERY 12 HOUR)
     Route: 048
     Dates: start: 20220704, end: 20220708
  14. BICYCLOL [Concomitant]
     Active Substance: BICYCLOL
     Indication: Product used for unknown indication
     Dosage: 25 MILLIGRAM, BID
     Route: 065
  15. ENTECAVIR [Concomitant]
     Active Substance: ENTECAVIR
     Indication: Antiviral treatment
     Dosage: UNK
     Route: 065
  16. IBUPROFEN [Concomitant]
     Active Substance: IBUPROFEN
     Indication: Pyrexia
     Dosage: UNK
     Route: 065
     Dates: start: 20220704
  17. OXYGEN [Concomitant]
     Active Substance: OXYGEN
     Indication: Oxygen therapy
     Dosage: UNK
  18. PIPERACILLIN SODIUM\TAZOBACTAM SODIUM [Concomitant]
     Active Substance: PIPERACILLIN SODIUM\TAZOBACTAM SODIUM
     Indication: Evidence based treatment
     Dosage: 2.5 GRAM, BID (EVERY 12 HOUR)
     Route: 042
     Dates: start: 20220704, end: 20220708
  19. DIETARY SUPPLEMENT\HERBALS\MILK THISTLE [Concomitant]
     Active Substance: MILK THISTLE
     Indication: Product used for unknown indication
     Dosage: 0.14 GRAM, TID
     Route: 065
  20. URSODIOL [Concomitant]
     Active Substance: URSODIOL
     Indication: Product used for unknown indication
     Dosage: 0.25 GRAM, BID
     Route: 065

REACTIONS (7)
  - Drug interaction [Unknown]
  - Drug level increased [Recovered/Resolved]
  - Drug-induced liver injury [Recovered/Resolved]
  - COVID-19 pneumonia [Recovering/Resolving]
  - Liver transplant rejection [Recovering/Resolving]
  - Toxicity to various agents [Recovered/Resolved]
  - Therapy partial responder [Unknown]

NARRATIVE: CASE EVENT DATE: 20220101
